FAERS Safety Report 9458864 (Version 1)
Quarter: 2013Q3

REPORT INFORMATION
  Report Type: Spontaneous
  Country: US (occurrence: US)
  Receive Date: 20130814
  Receipt Date: 20130814
  Transmission Date: 20140515
  Serious: Yes (Other)
  Sender: FDA-Public Use
  Company Number: US-PFIZER INC-2013233129

PATIENT
  Age: 39 Year
  Sex: Female
  Weight: 146 kg

DRUGS (4)
  1. ZYVOX [Suspect]
     Indication: STAPHYLOCOCCAL INFECTION
     Dosage: 600 MG, 2X/DAY
     Dates: start: 2013, end: 2013
  2. ZOLOFT [Concomitant]
     Indication: DEPRESSION
     Dosage: UNK
  3. LAMICTAL [Concomitant]
     Indication: ANXIETY
     Dosage: UNK
  4. DILAUDID [Concomitant]
     Indication: PAIN
     Dosage: UNK

REACTIONS (5)
  - Staphylococcal infection [Unknown]
  - Lip swelling [Unknown]
  - Rash macular [Unknown]
  - Fungal infection [Unknown]
  - Oral candidiasis [Unknown]
